FAERS Safety Report 12936894 (Version 1)
Quarter: 2016Q4

REPORT INFORMATION
  Report Type: Spontaneous
  Country: CN (occurrence: CN)
  Receive Date: 20161114
  Receipt Date: 20161114
  Transmission Date: 20170207
  Serious: Yes (Other)
  Sender: FDA-Public Use
  Company Number: CN-PFIZER INC-2016525071

PATIENT
  Age: 36 Year
  Sex: Female
  Weight: 65 kg

DRUGS (1)
  1. CEFOPERAZONE SODIUM [Suspect]
     Active Substance: CEFOPERAZONE SODIUM
     Indication: APPENDICITIS
     Dosage: 2 G, 2X/DAY / EVERY 12 HOURS
     Route: 041
     Dates: start: 20160909, end: 20160909

REACTIONS (3)
  - Papule [Recovered/Resolved]
  - Hypersensitivity [Recovered/Resolved]
  - Pruritus [Recovered/Resolved]

NARRATIVE: CASE EVENT DATE: 20160909
